FAERS Safety Report 18303334 (Version 1)
Quarter: 2020Q3

REPORT INFORMATION
  Report Type: Other
  Country: CA (occurrence: CA)
  Receive Date: 20200923
  Receipt Date: 20200923
  Transmission Date: 20201103
  Serious: Yes (Death, Hospitalization, Other)
  Sender: FDA-Public Use
  Company Number: CA-APOTEX-2020AP018093

PATIENT
  Age: 52 Year
  Sex: Male

DRUGS (2)
  1. SANDOSTATIN [Suspect]
     Active Substance: OCTREOTIDE ACETATE
     Indication: CARCINOID TUMOUR
     Dosage: 20 MILLIGRAM, Q.M.T.
     Route: 030
  2. AMLODIPINE [Suspect]
     Active Substance: AMLODIPINE BESYLATE
     Indication: BLOOD PRESSURE INCREASED
     Dosage: 1 DOSAGE FORM, QD
     Route: 048

REACTIONS (27)
  - Alopecia [Fatal]
  - Bone pain [Fatal]
  - Pain in jaw [Fatal]
  - Swelling face [Fatal]
  - Weight increased [Fatal]
  - Asthenia [Fatal]
  - Pulmonary pain [Fatal]
  - Stress [Fatal]
  - Depression [Fatal]
  - Hypoaesthesia [Fatal]
  - Injection site pain [Fatal]
  - Liver disorder [Fatal]
  - Metastases to central nervous system [Fatal]
  - Ear pain [Fatal]
  - Fatigue [Fatal]
  - Dyspnoea [Fatal]
  - Hyperhidrosis [Fatal]
  - Malaise [Fatal]
  - Somnolence [Fatal]
  - Pain in extremity [Fatal]
  - Chest pain [Fatal]
  - Lung disorder [Fatal]
  - Blood pressure increased [Fatal]
  - Cough [Fatal]
  - Gastric disorder [Fatal]
  - Increased appetite [Fatal]
  - Renal impairment [Fatal]
